FAERS Safety Report 5524329-9 (Version None)
Quarter: 2007Q4

REPORT INFORMATION
  Report Type: 
  Country: None (occurrence: None)
  Receive Date: 20071121
  Receipt Date: 20071112
  Transmission Date: 20080405
  Serious: Yes (Hospitalization)
  Sender: FDA-Public Use
  Company Number: FR-PFIZER INC-2007095763

PATIENT
  Age: 86 Year
  Sex: Female

DRUGS (10)
  1. LYRICA [Suspect]
     Route: 048
  2. ARAVA [Suspect]
     Route: 048
  3. MOPRAL [Suspect]
     Route: 048
  4. DEROXAT [Suspect]
     Route: 048
  5. PARACETAMOL [Suspect]
     Dosage: DAILY DOSE:4GRAM-TEXT:DAILY 4 G
  6. PREDNISONE TAB [Concomitant]
  7. BROMAZEPAM [Concomitant]
  8. ACUPAN [Concomitant]
  9. CACIT [Concomitant]
  10. LUMIGAN [Concomitant]

REACTIONS (2)
  - GAMMA-GLUTAMYLTRANSFERASE INCREASED [None]
  - HEPATITIS [None]
